FAERS Safety Report 23457642 (Version 1)
Quarter: 2024Q1

REPORT INFORMATION
  Report Type: Spontaneous
  Country: US (occurrence: US)
  Receive Date: 20240130
  Receipt Date: 20240130
  Transmission Date: 20240410
  Serious: No
  Sender: FDA-Public Use
  Company Number: US-GALDERMA-US2023005631

PATIENT

DRUGS (2)
  1. SOOLANTRA [Suspect]
     Active Substance: IVERMECTIN
     Indication: Rosacea
     Dosage: 1 DOSAGE FORM, QD
     Route: 061
     Dates: start: 2023
  2. FINACEA [Concomitant]
     Active Substance: AZELAIC ACID
     Indication: Rosacea
     Dosage: UNK
     Route: 065

REACTIONS (3)
  - Acne [Recovering/Resolving]
  - Intentional underdose [Recovered/Resolved]
  - Intentional product misuse [Recovered/Resolved]

NARRATIVE: CASE EVENT DATE: 20230101
